FAERS Safety Report 23811061 (Version 9)
Quarter: 2025Q3

REPORT INFORMATION
  Report Type: Spontaneous
  Country: US (occurrence: US)
  Receive Date: 20240502
  Receipt Date: 20250918
  Transmission Date: 20251021
  Serious: Yes (Death, Hospitalization, Other)
  Sender: CSL BEHRING
  Company Number: US-BEH-2024171325

PATIENT
  Age: 47 Year
  Sex: Female

DRUGS (23)
  1. HIZENTRA [Suspect]
     Active Substance: HUMAN IMMUNOGLOBULIN G
     Indication: Immunodeficiency common variable
     Dosage: 14 G, QW
     Route: 058
  2. HIZENTRA [Suspect]
     Active Substance: HUMAN IMMUNOGLOBULIN G
     Indication: Idiopathic interstitial pneumonia
     Dosage: 14 G, QW
     Route: 058
  3. HIZENTRA [Suspect]
     Active Substance: HUMAN IMMUNOGLOBULIN G
     Dosage: 14 G, QW
     Route: 058
  4. HIZENTRA [Suspect]
     Active Substance: HUMAN IMMUNOGLOBULIN G
     Dosage: 20 G, QW
     Route: 058
  5. CARVEDILOL [Concomitant]
     Active Substance: CARVEDILOL
  6. EPINEPHRINE [Concomitant]
     Active Substance: EPINEPHRINE
  7. FLUTICASONE PROPIONATE [Concomitant]
     Active Substance: FLUTICASONE PROPIONATE
  8. GABAPENTIN [Concomitant]
     Active Substance: GABAPENTIN
  9. GUAIFENESIN [Concomitant]
     Active Substance: GUAIFENESIN
  10. MAGNESIUM CHLORIDE [Concomitant]
     Active Substance: MAGNESIUM CHLORIDE
  11. SERTRALINE HYDROCHLORIDE [Concomitant]
     Active Substance: SERTRALINE HYDROCHLORIDE
  12. SODIUM CHLORIDE [Concomitant]
     Active Substance: SODIUM CHLORIDE
  13. SPIRONOLACTONE [Concomitant]
     Active Substance: SPIRONOLACTONE
  14. ALBUTEROL SULFATE [Concomitant]
     Active Substance: ALBUTEROL SULFATE
  15. FUROSEMIDE [Concomitant]
     Active Substance: FUROSEMIDE
  16. LOSARTAN POTASSIUM [Concomitant]
     Active Substance: LOSARTAN POTASSIUM
  17. SILDENAFIL CITRATE [Concomitant]
     Active Substance: SILDENAFIL CITRATE
  18. TOBRAMYCIN SULFATE [Concomitant]
     Active Substance: TOBRAMYCIN SULFATE
  19. BUMEX [Concomitant]
     Active Substance: BUMETANIDE
  20. FLECAINIDE [Concomitant]
     Active Substance: FLECAINIDE
  21. MIDODRINE HYDROCHLORIDE [Concomitant]
     Active Substance: MIDODRINE HYDROCHLORIDE
  22. DOPTELET [Concomitant]
     Active Substance: AVATROMBOPAG MALEATE
  23. TYVASO [Concomitant]
     Active Substance: TREPROSTINIL

REACTIONS (16)
  - Death [Fatal]
  - Atrial fibrillation [Recovered/Resolved]
  - Tachycardia [Recovered/Resolved]
  - Pneumonia [Recovered/Resolved]
  - Hypervolaemia [Unknown]
  - Depression [Recovered/Resolved]
  - Respiratory tract infection [Unknown]
  - White blood cell count decreased [Unknown]
  - Ear infection [Unknown]
  - Lower respiratory tract infection [Unknown]
  - Cough [Unknown]
  - Respiratory tract congestion [Unknown]
  - Rales [Unknown]
  - Nasopharyngitis [Unknown]
  - COVID-19 [Unknown]
  - Conjunctivitis [Unknown]

NARRATIVE: CASE EVENT DATE: 20241001
